FAERS Safety Report 24639079 (Version 2)
Quarter: 2024Q4

REPORT INFORMATION
  Report Type: Spontaneous
  Country: US (occurrence: US)
  Receive Date: 20241119
  Receipt Date: 20241209
  Transmission Date: 20250115
  Serious: No
  Sender: INSUD PHARMA
  Company Number: US-INSUD PHARMA-2411US08649

PATIENT

DRUGS (3)
  1. SLYND [Suspect]
     Active Substance: DROSPIRENONE
     Indication: Anovulatory cycle
     Dosage: 1 QD
     Route: 048
  2. SLYND [Suspect]
     Active Substance: DROSPIRENONE
     Indication: Endometriosis
  3. UNSPECIFIED INGREDIENT [Concomitant]
     Active Substance: UNSPECIFIED INGREDIENT

REACTIONS (3)
  - Drug ineffective [Unknown]
  - Intermenstrual bleeding [Recovered/Resolved]
  - Intentional dose omission [Unknown]
